FAERS Safety Report 11560182 (Version 3)
Quarter: 2015Q4

REPORT INFORMATION
  Report Type: Spontaneous
  Country: JP (occurrence: JP)
  Receive Date: 20150928
  Receipt Date: 20151030
  Transmission Date: 20160304
  Serious: Yes (Life-Threatening, Other)
  Sender: FDA-Public Use
  Company Number: PHJP2015JP015127

PATIENT
  Age: 84 Year
  Sex: Female
  Weight: 42 kg

DRUGS (4)
  1. EXELON PATCH [Suspect]
     Active Substance: RIVASTIGMINE
     Dosage: (PATCH 5 CM2, 09 MG DAILY RIVASTIGMINE BASE)
     Route: 062
     Dates: start: 20150501, end: 20150526
  2. EXELON PATCH [Suspect]
     Active Substance: RIVASTIGMINE
     Dosage: 6.9 MG/24HOURS (PATCH 7.5 CM2, 13.5 MG DAILY RIVASTIGMINE BASE)
     Route: 062
     Dates: start: 20150527, end: 20150721
  3. EXELON PATCH [Suspect]
     Active Substance: RIVASTIGMINE
     Dosage: 9.5 MG/ 24H (PATCH 10 CM2, 18 MG RIVASTIGMINE BASE)
     Route: 062
     Dates: start: 20150722, end: 20150830
  4. EXELON PATCH [Suspect]
     Active Substance: RIVASTIGMINE
     Indication: DEMENTIA ALZHEIMER^S TYPE
     Dosage: PATCH 2.5 (CM2), QD
     Route: 062
     Dates: start: 20150304, end: 20150430

REACTIONS (1)
  - Platelet count decreased [Not Recovered/Not Resolved]

NARRATIVE: CASE EVENT DATE: 20150527
